FAERS Safety Report 8113596-3 (Version None)
Quarter: 2012Q1

REPORT INFORMATION
  Report Type: 
  Country: None (occurrence: None)
  Receive Date: 20120203
  Receipt Date: 20120131
  Transmission Date: 20120608
  Serious: Yes (Other)
  Sender: FDA-Public Use
  Company Number: IN-PFIZER INC-2012028315

PATIENT
  Sex: Female

DRUGS (1)
  1. LYRICA [Suspect]
     Indication: NEURALGIA
     Dosage: UNK, 1 CAPSULE THREE TIMES A DAY
     Route: 048

REACTIONS (3)
  - HYPERSENSITIVITY [None]
  - NEURITIS [None]
  - PAIN [None]
